FAERS Safety Report 23625148 (Version 1)
Quarter: 2024Q1

REPORT INFORMATION
  Report Type: Spontaneous
  Country: US (occurrence: US)
  Receive Date: 20240313
  Receipt Date: 20240313
  Transmission Date: 20240409
  Serious: Yes (Other)
  Sender: FDA-Public Use
  Company Number: US-AMGEN-USASP2024048476

PATIENT
  Age: 76 Year
  Sex: Male

DRUGS (5)
  1. BEVACIZUMAB [Suspect]
     Active Substance: BEVACIZUMAB
     Indication: Neovascular age-related macular degeneration
     Dosage: UNK
  2. AFLIBERCEPT [Concomitant]
     Active Substance: AFLIBERCEPT
     Indication: Neovascular age-related macular degeneration
     Dosage: 2 MILLIGRAM
  3. FARICIMAB [Concomitant]
     Active Substance: FARICIMAB
     Indication: Neovascular age-related macular degeneration
     Dosage: UNK
  4. BETADINE [Concomitant]
     Active Substance: POVIDONE-IODINE
     Dosage: 5 PERCENT
     Route: 065
  5. PROPARACAINE [Concomitant]
     Active Substance: PROPARACAINE
     Dosage: 0.5 PERCENT
     Route: 065

REACTIONS (2)
  - Vitritis [Recovered/Resolved]
  - Off label use [Unknown]
